FAERS Safety Report 4706714-8 (Version None)
Quarter: 2005Q2

REPORT INFORMATION
  Report Type: 
  Country: None (occurrence: None)
  Receive Date: 20050629
  Receipt Date: 20050426
  Transmission Date: 20051028
  Serious: No
  Sender: FDA-Public Use
  Company Number: 05P-163-0298433-00

PATIENT
  Age: 69 Year
  Sex: Female
  Weight: 91 kg

DRUGS (14)
  1. HUMIRA [Suspect]
     Indication: RHEUMATOID ARTHRITIS
     Dosage: 40 MG, 1 IN 1 WK, SUBCUTANEOUS
     Route: 058
     Dates: start: 20030201
  2. METHOTREXATE SODIUM [Concomitant]
  3. NAPROXEN [Concomitant]
  4. PREDNISONE [Concomitant]
  5. LISINOPRIL [Concomitant]
  6. IMIPRAMINE [Concomitant]
  7. PANTOPRAZOLE [Concomitant]
  8. GLIMEPIRIDE [Concomitant]
  9. FOLIC ACID [Concomitant]
  10. ZOCOR [Concomitant]
  11. ALENDRONATE SODIUM [Concomitant]
  12. ADVAIR DISKUS 100/50 [Concomitant]
  13. VITAMIN [Concomitant]
  14. ASPIRIN [Concomitant]

REACTIONS (1)
  - PNEUMONIA [None]
